FAERS Safety Report 4696590-4 (Version None)
Quarter: 2005Q2

REPORT INFORMATION
  Report Type: 
  Country: None (occurrence: None)
  Receive Date: 20050620
  Receipt Date: 20040520
  Transmission Date: 20051028
  Serious: Yes (Other)
  Sender: FDA-Public Use
  Company Number: 200410579US

PATIENT
  Age: 72 Year
  Sex: Female
  Weight: 90.9 kg

DRUGS (8)
  1. LANTUS [Suspect]
     Indication: DIABETES MELLITUS NON-INSULIN-DEPENDENT
     Dosage: 65 U HS INJ
  2. LANTUS [Suspect]
     Indication: DIABETES MELLITUS NON-INSULIN-DEPENDENT
     Dosage: 60 U HS INJ
  3. AMARYL [Concomitant]
  4. INSULIN HUMAN INJECTION, ISOPHANE (HUMULIN N) [Concomitant]
  5. BENAZEPRIL HYDROCHLORIDE (LOTENSIN) [Concomitant]
  6. LIPITOR [Concomitant]
  7. METOPROLOL SUCCINATE [Concomitant]
  8. GYLBURIDE [Concomitant]

REACTIONS (2)
  - BLOOD GLUCOSE DECREASED [None]
  - HYPOGLYCAEMIA [None]
